FAERS Safety Report 15281455 (Version 1)
Quarter: 2018Q3

REPORT INFORMATION
  Report Type: Spontaneous
  Country: JP (occurrence: JP)
  Receive Date: 20180815
  Receipt Date: 20180815
  Transmission Date: 20181010
  Serious: Yes (Hospitalization)
  Sender: FDA-Public Use
  Company Number: JP-PFIZER INC-2018321205

PATIENT
  Age: 68 Year
  Sex: Female
  Weight: 53 kg

DRUGS (13)
  1. EXEMESTANE. [Suspect]
     Active Substance: EXEMESTANE
     Dosage: UNK
     Dates: start: 20160831
  2. ERIBULIN [Suspect]
     Active Substance: ERIBULIN
     Dosage: 1.1 MG/M2, UNK
     Dates: start: 20171218
  3. AMITIZA [Concomitant]
     Active Substance: LUBIPROSTONE
     Dosage: 24 UG, 2X/DAY
     Route: 048
     Dates: start: 20160518
  4. EVEROLIMUS. [Suspect]
     Active Substance: EVEROLIMUS
     Dosage: 5 MG, UNK
     Dates: start: 20160509
  5. MAGMITT [Concomitant]
     Active Substance: MAGNESIUM OXIDE
     Dosage: 330 MG, 3X/DAY
     Route: 048
     Dates: start: 20160323
  6. EVEROLIMUS. [Suspect]
     Active Substance: EVEROLIMUS
     Dosage: 5 MG, UNK
     Dates: start: 20160831
  7. EXEMESTANE. [Suspect]
     Active Substance: EXEMESTANE
     Dosage: 25 MG, UNK
     Dates: start: 20160509
  8. ERIBULIN [Suspect]
     Active Substance: ERIBULIN
     Dosage: 0.8 MG/M2, UNK
     Dates: start: 20180109, end: 20180205
  9. DENOTAS [Concomitant]
     Active Substance: CALCIUM CARBONATE\CHOLECALCIFEROL\MAGNESIUM CARBONATE
     Dosage: UNK
     Route: 048
     Dates: start: 20150113
  10. DENOSUMAB [Concomitant]
     Active Substance: DENOSUMAB
     Dosage: UNK
     Dates: start: 20160405, end: 20161125
  11. EXEMESTANE. [Suspect]
     Active Substance: EXEMESTANE
     Dosage: 25 MG, UNK
     Dates: start: 20161005
  12. EVEROLIMUS. [Suspect]
     Active Substance: EVEROLIMUS
     Dosage: 10 MG, UNK
     Dates: start: 20161005
  13. ERIBULIN [Suspect]
     Active Substance: ERIBULIN
     Dosage: 1.1 MG/M2, EVERY OTHER WEEK
     Dates: start: 20170501, end: 20171030

REACTIONS (5)
  - Urinary tract infection [Unknown]
  - Febrile neutropenia [Unknown]
  - Neoplasm progression [Unknown]
  - Stomatitis [Unknown]
  - Liver function test abnormal [Unknown]

NARRATIVE: CASE EVENT DATE: 20161025
